FAERS Safety Report 14179923 (Version 1)
Quarter: 2017Q4

REPORT INFORMATION
  Report Type: Spontaneous
  Country: US (occurrence: US)
  Receive Date: 20171110
  Receipt Date: 20171110
  Transmission Date: 20180321
  Serious: Yes (Hospitalization, Other)
  Sender: FDA-Public Use
  Company Number: US-SA-2017SA214812

PATIENT
  Age: 90 Year
  Sex: Female

DRUGS (2)
  1. LANTUS [Suspect]
     Active Substance: INSULIN GLARGINE
     Indication: TYPE 2 DIABETES MELLITUS
     Dosage: DOSE: A CURRENT DOSE OF 5 UNITS IN THE AM AND 7 UNITS IN THE PM
     Route: 051
     Dates: start: 201704
  2. HUMALOG [Suspect]
     Active Substance: INSULIN LISPRO
     Route: 065

REACTIONS (4)
  - Dementia [Unknown]
  - Pyrexia [Unknown]
  - Product use issue [Unknown]
  - Bacterial infection [Unknown]

NARRATIVE: CASE EVENT DATE: 2017
